FAERS Safety Report 25419002 (Version 1)
Quarter: 2025Q2

REPORT INFORMATION
  Report Type: Spontaneous
  Country: JP (occurrence: JP)
  Receive Date: 20250610
  Receipt Date: 20250610
  Transmission Date: 20250717
  Serious: Yes (Life-Threatening, Other)
  Sender: AMGEN
  Company Number: JP-AMGEN-JPNSP2025110476

PATIENT

DRUGS (5)
  1. FILGRASTIM [Suspect]
     Active Substance: FILGRASTIM
     Indication: Prophylaxis
     Route: 058
  2. PEGFILGRASTIM [Suspect]
     Active Substance: PEGFILGRASTIM
     Indication: Prophylaxis
     Route: 058
  3. CISPLATIN [Concomitant]
     Active Substance: CISPLATIN
     Indication: Oesophageal carcinoma
     Dosage: 70 MILLIGRAM/SQ. METER, Q3WK, ON DAY 1
  4. FLUOROURACIL [Concomitant]
     Active Substance: FLUOROURACIL
     Indication: Oesophageal carcinoma
     Dosage: 750 MILLIGRAM/SQ. METER, Q3WK ON DAYS 1-5
  5. DOCETAXEL [Concomitant]
     Active Substance: DOCETAXEL
     Indication: Oesophageal carcinoma
     Dosage: 70 MILLIGRAM/SQ. METER, Q3WK ON DAY 1

REACTIONS (19)
  - Febrile neutropenia [Unknown]
  - Oesophageal carcinoma [Unknown]
  - Neutropenia [Unknown]
  - Hyponatraemia [Unknown]
  - Thrombocytopenia [Unknown]
  - Decreased appetite [Unknown]
  - Diarrhoea [Unknown]
  - Arthritis [Unknown]
  - Stomatitis [Unknown]
  - Alanine aminotransferase increased [Unknown]
  - Blood creatinine increased [Unknown]
  - Aspartate aminotransferase increased [Unknown]
  - Fatigue [Unknown]
  - Nausea [Unknown]
  - Anaemia [Unknown]
  - Blood lactate dehydrogenase increased [Unknown]
  - Vomiting [Unknown]
  - Bone pain [Recovered/Resolved]
  - Back pain [Recovered/Resolved]
